FAERS Safety Report 8420490-7 (Version None)
Quarter: 2012Q2

REPORT INFORMATION
  Report Type: 
  Country: None (occurrence: None)
  Receive Date: 20120608
  Receipt Date: 20120604
  Transmission Date: 20120825
  Serious: Yes (Hospitalization)
  Sender: FDA-Public Use
  Company Number: DE-AMGEN-DEUSP2012012181

PATIENT
  Age: 92 Year
  Sex: Female
  Weight: 58 kg

DRUGS (11)
  1. MONOLONG [Concomitant]
     Indication: HYPERTENSION
     Dosage: UNK UNK, QD
  2. GABAPENTIN [Concomitant]
     Indication: PAIN
     Dosage: UNK UNK, QD
  3. TORSEMIDE [Concomitant]
     Indication: HYPERTENSION
     Dosage: UNK UNK, QD
  4. CANDESARTAN CILEXETIL [Concomitant]
     Indication: HYPERTENSION
     Dosage: UNK UNK, QD
  5. PANTOPRAZOLE [Concomitant]
     Indication: GASTROOESOPHAGEAL REFLUX DISEASE
     Dosage: UNK UNK, QD
  6. PROLIA [Suspect]
     Indication: OSTEOPOROSIS POSTMENOPAUSAL
     Dosage: 60 MG, UNK
     Route: 058
     Dates: start: 20100610, end: 20110609
  7. OPIUM/NALOXONE TAB [Concomitant]
     Indication: PAIN
     Dosage: UNK UNK, BID
  8. CALCILAC [Concomitant]
     Indication: OSTEOPOROSIS
  9. IBUPROFEN [Concomitant]
     Indication: PAIN
     Dosage: 400 MG, PRN
  10. PAN-OPHTAL [Concomitant]
     Dosage: UNK UNK, TID
  11. ASPIRIN [Concomitant]
     Dosage: UNK UNK, QD

REACTIONS (2)
  - JAW DISORDER [None]
  - OSTEONECROSIS OF JAW [None]
